FAERS Safety Report 16956433 (Version 1)
Quarter: 2019Q4

REPORT INFORMATION
  Report Type: Spontaneous
  Country: US (occurrence: US)
  Receive Date: 20191023
  Receipt Date: 20191023
  Transmission Date: 20200122
  Serious: Yes (Other)
  Sender: FDA-Public Use
  Company Number: None

PATIENT
  Age: 66 Year
  Sex: Female
  Weight: 76.5 kg

DRUGS (3)
  1. EZETIMIBE. [Suspect]
     Active Substance: EZETIMIBE
     Route: 048
     Dates: start: 20190910, end: 20191022
  2. ZOLOFT       TAB 100MG [Concomitant]
  3. VALSARTAN    TAB 320MG [Concomitant]
     Active Substance: VALSARTAN

REACTIONS (1)
  - Back pain [None]

NARRATIVE: CASE EVENT DATE: 20191019
